FAERS Safety Report 9118293 (Version 1)
Quarter: 2013Q1

REPORT INFORMATION
  Report Type: Spontaneous
  Country: US (occurrence: None)
  Receive Date: 20130221
  Receipt Date: 20130221
  Transmission Date: 20140127
  Serious: No
  Sender: FDA-Public Use
  Company Number: None

PATIENT
  Sex: Female
  Weight: 58.06 kg

DRUGS (1)
  1. NICARDIPINE HCL MFG MYLAN [Suspect]
     Indication: HYPERTENSION
     Dosage: 30 MG CAP TWICE A DAY BY MOUTH
     Route: 048
     Dates: start: 201209, end: 20130213

REACTIONS (9)
  - Pollakiuria [None]
  - Dry mouth [None]
  - Dizziness [None]
  - Flushing [None]
  - Nausea [None]
  - Dry skin [None]
  - Pruritus [None]
  - Insomnia [None]
  - Nocturia [None]
